FAERS Safety Report 7275246-8 (Version None)
Quarter: 2011Q1

REPORT INFORMATION
  Report Type: 
  Country: None (occurrence: None)
  Receive Date: 20110204
  Receipt Date: 20110201
  Transmission Date: 20110831
  Serious: Yes (Life-Threatening, Hospitalization)
  Sender: FDA-Public Use
  Company Number: FR-PFIZER INC-2011022945

PATIENT
  Age: 46 Year
  Sex: Female

DRUGS (2)
  1. SUTENT [Suspect]
     Indication: HEPATIC NEOPLASM MALIGNANT
     Dosage: 37.5 MG, 1X/DAY
     Route: 048
     Dates: start: 20101101, end: 20110101
  2. INNOHEP [Concomitant]
     Indication: SUPERIOR VENA CAVA SYNDROME

REACTIONS (6)
  - RENAL FAILURE [None]
  - CYTOLYTIC HEPATITIS [None]
  - HEPATIC FAILURE [None]
  - THROMBOTIC MICROANGIOPATHY [None]
  - STREPTOCOCCAL INFECTION [None]
  - BREAST HAEMATOMA [None]
